FAERS Safety Report 8142512-3 (Version None)
Quarter: 2012Q1

REPORT INFORMATION
  Report Type: 
  Country: None (occurrence: None)
  Receive Date: 20120216
  Receipt Date: 20120216
  Transmission Date: 20120608
  Serious: Yes (Hospitalization, Other)
  Sender: FDA-Public Use
  Company Number: AU-BAYER-2012-015289

PATIENT
  Age: 66 Year
  Sex: Male
  Weight: 83.5 kg

DRUGS (4)
  1. HEPARIN [Concomitant]
     Indication: PRODUCT USED FOR UNKNOWN INDICATION
  2. INSULIN [Concomitant]
     Indication: PRODUCT USED FOR UNKNOWN INDICATION
  3. ULTRAVIST 150 [Suspect]
     Indication: SCAN
     Dosage: 100 ML, ONCE
     Route: 042
     Dates: start: 20120214, end: 20120214
  4. NOREPINEPHRINE BITARTRATE [Concomitant]
     Indication: PRODUCT USED FOR UNKNOWN INDICATION

REACTIONS (4)
  - CARDIOGENIC SHOCK [None]
  - METABOLIC ACIDOSIS [None]
  - URTICARIA [None]
  - RESPIRATORY ALKALOSIS [None]
